FAERS Safety Report 10912161 (Version 1)
Quarter: 2015Q1

REPORT INFORMATION
  Report Type: Spontaneous
  Country: JP (occurrence: None)
  Receive Date: 20150309
  Receipt Date: 20150309
  Transmission Date: 20150721
  Serious: Yes (Other)
  Sender: FDA-Public Use
  Company Number: ABR_02088_2015

PATIENT
  Age: 74 Year
  Sex: Female

DRUGS (1)
  1. GLIADEL [Suspect]
     Active Substance: CARMUSTINE
     Indication: MALIGNANT GLIOMA
     Dosage: (INTRACEREBRAL)
     Dates: start: 20131031

REACTIONS (3)
  - Condition aggravated [None]
  - Brain oedema [None]
  - Neurological symptom [None]
